FAERS Safety Report 23357933 (Version 1)
Quarter: 2024Q1

REPORT INFORMATION
  Report Type: Spontaneous
  Country: US (occurrence: US)
  Receive Date: 20240102
  Receipt Date: 20240102
  Transmission Date: 20240410
  Serious: Yes (Hospitalization)
  Sender: FDA-Public Use
  Company Number: US-MYLANLABS-2023M1130981

PATIENT
  Age: 49 Year
  Sex: Female

DRUGS (10)
  1. TRIAMCINOLONE [Suspect]
     Active Substance: TRIAMCINOLONE
     Indication: Greater trochanteric pain syndrome
     Dosage: 80 MILLIGRAM (INJECTION TO THE GREATER TROCHANTERIC BURSA)
     Route: 042
  2. LIDOCAINE [Suspect]
     Active Substance: LIDOCAINE
     Indication: Soft tissue atrophy
     Dosage: 10 MILLILITER
     Route: 065
  3. LIDOCAINE [Suspect]
     Active Substance: LIDOCAINE
     Indication: Hip deformity
  4. LIDOCAINE [Suspect]
     Active Substance: LIDOCAINE
     Indication: Injection site atrophy
  5. EPINEPHRINE [Suspect]
     Active Substance: EPINEPHRINE
     Indication: Soft tissue atrophy
     Dosage: UNK
     Route: 065
  6. EPINEPHRINE [Suspect]
     Active Substance: EPINEPHRINE
     Indication: Hip deformity
  7. EPINEPHRINE [Suspect]
     Active Substance: EPINEPHRINE
     Indication: Injection site atrophy
  8. SODIUM CHLORIDE [Suspect]
     Active Substance: SODIUM CHLORIDE
     Indication: Soft tissue atrophy
     Dosage: 80 MILLILITER
     Route: 065
  9. SODIUM CHLORIDE [Suspect]
     Active Substance: SODIUM CHLORIDE
     Indication: Hip deformity
  10. SODIUM CHLORIDE [Suspect]
     Active Substance: SODIUM CHLORIDE
     Indication: Injection site atrophy

REACTIONS (5)
  - Soft tissue atrophy [Recovered/Resolved]
  - Hip deformity [Recovered/Resolved]
  - Injection site atrophy [Recovered/Resolved]
  - Drug ineffective for unapproved indication [Unknown]
  - Off label use [Unknown]
